FAERS Safety Report 20865546 (Version 1)
Quarter: 2022Q2

REPORT INFORMATION
  Report Type: Spontaneous
  Country: ZA (occurrence: ZA)
  Receive Date: 20220524
  Receipt Date: 20220524
  Transmission Date: 20220721
  Serious: Yes (Other)
  Sender: FDA-Public Use
  Company Number: ZA-ORGANON-O2205ZAF001578

PATIENT
  Age: 37 Year
  Sex: Female

DRUGS (1)
  1. ETONOGESTREL [Suspect]
     Active Substance: ETONOGESTREL
     Dosage: 1 IMPLANT
     Route: 059
     Dates: start: 20210417

REACTIONS (4)
  - Cellulitis [Unknown]
  - Inflammation [Unknown]
  - Pain in extremity [Unknown]
  - Tenderness [Unknown]
